FAERS Safety Report 7150839-7 (Version None)
Quarter: 2010Q4

REPORT INFORMATION
  Report Type: 
  Country: None (occurrence: None)
  Receive Date: 20101210
  Receipt Date: 20101201
  Transmission Date: 20110411
  Serious: Yes (Hospitalization, Other)
  Sender: FDA-Public Use
  Company Number: PHHO2010AU17281

PATIENT
  Sex: Male
  Weight: 68.9 kg

DRUGS (4)
  1. DIOVAN [Suspect]
     Indication: HYPERTENSION
     Dosage: UNK
     Route: 048
  2. METFORMIN HCL [Concomitant]
  3. VYTORIN [Concomitant]
  4. DIAMICRON [Concomitant]

REACTIONS (6)
  - ARTHRALGIA [None]
  - ERYTHEMA [None]
  - GOUT [None]
  - INFECTION [None]
  - JOINT SWELLING [None]
  - METASTASES TO BONE [None]
